FAERS Safety Report 6766800-8 (Version None)
Quarter: 2010Q2

REPORT INFORMATION
  Report Type: 
  Country: None (occurrence: None)
  Receive Date: 20100609
  Receipt Date: 20100531
  Transmission Date: 20101027
  Serious: Yes (Hospitalization)
  Sender: FDA-Public Use
  Company Number: DSJ-2010-08240

PATIENT
  Age: 87 Year
  Sex: Female

DRUGS (4)
  1. OLMESARTAN MEDOXOMIL [Suspect]
     Indication: HYPERTENSION
     Dosage: 20 MG, PER ORAL
     Route: 048
     Dates: start: 20090525
  2. MAGNESIUM OXIDE                (MAGNESIUM OXIDE) (MAGNESIUM OXIDE) [Concomitant]
  3. NORVASC [Concomitant]
  4. GANATON        (ITOPRIDE HYDROCHLORIDE) (ITOPRIDE HYDROCHLORIDE) [Concomitant]

REACTIONS (4)
  - ALTERED STATE OF CONSCIOUSNESS [None]
  - DIZZINESS [None]
  - HYPONATRAEMIA [None]
  - MALAISE [None]
